FAERS Safety Report 6327051-4 (Version None)
Quarter: 2009Q3

REPORT INFORMATION
  Report Type: 
  Country: None (occurrence: None)
  Receive Date: 20090821
  Receipt Date: 20090810
  Transmission Date: 20100115
  Serious: Yes (Life-Threatening, Hospitalization)
  Sender: FDA-Public Use
  Company Number: ADR11582009

PATIENT
  Age: 14 Year
  Sex: Female

DRUGS (3)
  1. METFORMIN HYDROCHLORIDE [Suspect]
     Dosage: OVERDOSE ORAL
     Route: 048
  2. ATENOLOL [Concomitant]
  3. DICLOFENAC [Concomitant]

REACTIONS (7)
  - BRADYCARDIA [None]
  - CONVULSION [None]
  - HAEMODIALYSIS [None]
  - HYPOGLYCAEMIA [None]
  - HYPOTENSION [None]
  - INTENTIONAL OVERDOSE [None]
  - LACTIC ACIDOSIS [None]
